FAERS Safety Report 6062652-2 (Version None)
Quarter: 2009Q1

REPORT INFORMATION
  Report Type: 
  Country: None (occurrence: None)
  Receive Date: 20090203
  Receipt Date: 20090122
  Transmission Date: 20090719
  Serious: Yes (Life-Threatening, Hospitalization)
  Sender: FDA-Public Use
  Company Number: JP-PFIZER INC-2009158808

PATIENT

DRUGS (9)
  1. SULPERAZON [Suspect]
     Indication: BILE DUCT STONE
     Dosage: 1 G, UNK
     Route: 042
     Dates: start: 20090114, end: 20090114
  2. ALL OTHER THERAPEUTIC PRODUCTS [Concomitant]
     Dosage: UNK
     Dates: start: 20090114, end: 20090114
  3. NIVADIL [Concomitant]
     Dosage: UNK
     Route: 048
  4. AMLODIPINE [Concomitant]
     Dosage: UNK
     Route: 048
  5. CARDENALIN [Concomitant]
     Dosage: UNK
     Route: 048
  6. SEDAGASTON [Concomitant]
     Dosage: UNK
     Route: 048
  7. LAFUTIDINE [Suspect]
     Dosage: UNK
     Route: 048
  8. OMEPRAL [Concomitant]
     Dosage: UNK
     Route: 048
     Dates: start: 20081121
  9. PROMAC /JPN/ [Concomitant]
     Dosage: UNK
     Route: 048
     Dates: start: 20081121

REACTIONS (1)
  - ANAPHYLACTIC SHOCK [None]
